FAERS Safety Report 7323450-2 (Version None)
Quarter: 2011Q1

REPORT INFORMATION
  Report Type: 
  Country: None (occurrence: None)
  Receive Date: 20110301
  Receipt Date: 20110216
  Transmission Date: 20110831
  Serious: Yes (Hospitalization)
  Sender: FDA-Public Use
  Company Number: US-ACTELION-A-US2011-45269

PATIENT

DRUGS (2)
  1. TRACLEER [Suspect]
     Indication: PULMONARY ARTERIAL HYPERTENSION
     Dosage: UNK
     Route: 048
     Dates: start: 20050701, end: 20110112
  2. REVATIO [Concomitant]

REACTIONS (3)
  - SPLENOMEGALY [None]
  - GASTROINTESTINAL HAEMORRHAGE [None]
  - HEPATOMEGALY [None]
